FAERS Safety Report 20907912 (Version 1)
Quarter: 2022Q2

REPORT INFORMATION
  Report Type: Spontaneous
  Country: BR (occurrence: BR)
  Receive Date: 20220602
  Receipt Date: 20220602
  Transmission Date: 20220721
  Serious: Yes (Life-Threatening, Other)
  Sender: FDA-Public Use
  Company Number: BR-TAKEDA-2022TUS036281

PATIENT
  Sex: Male

DRUGS (12)
  1. HUMAN IMMUNOGLOBULIN G [Suspect]
     Active Substance: HUMAN IMMUNOGLOBULIN G
     Indication: Product used for unknown indication
     Dosage: 1 DOSAGE FORM, Q4WEEKS
     Route: 042
  2. HUMAN IMMUNOGLOBULIN G [Suspect]
     Active Substance: HUMAN IMMUNOGLOBULIN G
     Dosage: 320 MILLIGRAM, 3/MONTH
     Route: 030
  3. HUMAN IMMUNOGLOBULIN G [Suspect]
     Active Substance: HUMAN IMMUNOGLOBULIN G
     Dosage: 1 DOSAGE FORM
     Route: 030
  4. HUMAN IMMUNOGLOBULIN G [Suspect]
     Active Substance: HUMAN IMMUNOGLOBULIN G
     Dosage: UNK, MONTHLY
     Route: 042
  5. HUMAN IMMUNOGLOBULIN G [Suspect]
     Active Substance: HUMAN IMMUNOGLOBULIN G
     Dosage: 2 DOSAGE FORM, Q2WEEKS
     Route: 058
  6. HYQVIA [Suspect]
     Active Substance: HUMAN IMMUNOGLOBULIN G\HYALURONIDASE RECOMBINANT HUMAN
     Indication: Product used for unknown indication
     Dosage: UNK
     Route: 065
  7. PREDNISONE [Concomitant]
     Active Substance: PREDNISONE
  8. HYDROXYZINE [Concomitant]
     Active Substance: HYDROXYZINE HYDROCHLORIDE
  9. POLARAMINE [Concomitant]
     Active Substance: DEXCHLORPHENIRAMINE MALEATE
  10. USTEKINUMAB [Concomitant]
     Active Substance: USTEKINUMAB
     Indication: Psoriatic arthropathy
     Dosage: UNK
     Route: 065
     Dates: start: 20170214
  11. USTEKINUMAB [Concomitant]
     Active Substance: USTEKINUMAB
     Indication: Psoriasis
  12. USTEKINUMAB [Concomitant]
     Active Substance: USTEKINUMAB
     Indication: Quality of life decreased

REACTIONS (24)
  - Anaphylactic reaction [Unknown]
  - Osteomyelitis chronic [Unknown]
  - Non-Hodgkin^s lymphoma [Unknown]
  - Combined immunodeficiency [Unknown]
  - Psoriatic arthropathy [Recovering/Resolving]
  - Staphylococcal infection [Unknown]
  - Condition aggravated [Recovering/Resolving]
  - Skin lesion [Unknown]
  - Myopia [Unknown]
  - Infection [Unknown]
  - Urticaria [Unknown]
  - Injury [Unknown]
  - Dyspnoea [Unknown]
  - Rhinitis [Unknown]
  - Therapy interrupted [Recovered/Resolved]
  - Quality of life decreased [Recovered/Resolved]
  - Psoriasis [Unknown]
  - Pain [Recovering/Resolving]
  - Headache [Recovered/Resolved]
  - Burning sensation [Recovering/Resolving]
  - Discomfort [Recovering/Resolving]
  - Anxiety [Recovering/Resolving]
  - Product availability issue [Unknown]
  - Nasal polyps [Unknown]

NARRATIVE: CASE EVENT DATE: 20030101
